FAERS Safety Report 9178702 (Version 1)
Quarter: 2012Q4

REPORT INFORMATION
  Report Type: 
  Country: US (occurrence: US)
  Receive Date: 20121029
  Receipt Date: 20121029
  Transmission Date: 20130627
  Serious: No
  Sender: FDA-Public Use
  Company Number: US-AMGEN-USASP2012053198

PATIENT
  Age: 33 Year
  Sex: Male
  Weight: 72 kg

DRUGS (3)
  1. ENBREL [Suspect]
     Indication: PRODUCT USED FOR UNKNOWN INDICATION
     Dosage: 50 mg, 2 times/wk
     Route: 058
  2. TEMOVATE [Concomitant]
     Dosage: 0.05 %, UNK
  3. PRILOSEC                           /00661201/ [Concomitant]
     Dosage: 20 mg, UNK
     Route: 048

REACTIONS (1)
  - Impaired healing [Unknown]
